FAERS Safety Report 18701667 (Version 1)
Quarter: 2021Q1

REPORT INFORMATION
  Report Type: Spontaneous
  Country: US (occurrence: US)
  Receive Date: 20210105
  Receipt Date: 20210105
  Transmission Date: 20210419
  Serious: Yes (Hospitalization)
  Sender: FDA-Public Use
  Company Number: None

PATIENT
  Age: 65 Year
  Sex: Female
  Weight: 106.1 kg

DRUGS (2)
  1. BAMLANIVIMAB EUA [Concomitant]
     Active Substance: BAMLANIVIMAB
     Dates: start: 20201223, end: 20201223
  2. BAMLANIVIMAB EUA [Suspect]
     Active Substance: BAMLANIVIMAB
     Indication: SARS-COV-2 TEST POSITIVE
     Dosage: ?          OTHER FREQUENCY:X 1 DOSE;?
     Route: 041
     Dates: start: 20201223, end: 20201223

REACTIONS (3)
  - Body temperature increased [None]
  - Tremor [None]
  - Chills [None]

NARRATIVE: CASE EVENT DATE: 20201223
